FAERS Safety Report 11448945 (Version 2)
Quarter: 2015Q4

REPORT INFORMATION
  Report Type: Report from Study
  Country: GB (occurrence: GB)
  Receive Date: 20150902
  Receipt Date: 20151014
  Transmission Date: 20160304
  Serious: Yes (Other)
  Sender: FDA-Public Use
  Company Number: GB-JNJFOC-20150900416

PATIENT
  Sex: Female

DRUGS (3)
  1. GABAPENTIN. [Concomitant]
     Active Substance: GABAPENTIN
     Indication: POST THROMBOTIC SYNDROME
     Route: 065
  2. XARELTO [Suspect]
     Active Substance: RIVAROXABAN
     Indication: EMBOLISM VENOUS
     Route: 048
     Dates: start: 2009
  3. XARELTO [Suspect]
     Active Substance: RIVAROXABAN
     Indication: PULMONARY EMBOLISM
     Route: 048
     Dates: start: 2009

REACTIONS (8)
  - Pain in extremity [Unknown]
  - Electrocardiogram abnormal [Unknown]
  - Heart rate increased [Unknown]
  - Pyrexia [Unknown]
  - Hypertension [Unknown]
  - Wheezing [Unknown]
  - Pulmonary fibrosis [Unknown]
  - Dyspnoea [Unknown]
